FAERS Safety Report 25402780 (Version 2)
Quarter: 2025Q3

REPORT INFORMATION
  Report Type: Spontaneous
  Country: US (occurrence: US)
  Receive Date: 20250605
  Receipt Date: 20250701
  Transmission Date: 20251021
  Serious: No
  Sender: NEUROCRINE BIOSCIENCES
  Company Number: US-NEUROCRINE BIOSCIENCES INC.-2025NBI06245

PATIENT
  Age: 20 Year
  Sex: Male

DRUGS (3)
  1. INGREZZA [Suspect]
     Active Substance: VALBENAZINE DITOSYLATE
     Indication: Tardive dyskinesia
     Route: 048
     Dates: start: 20250412, end: 202504
  2. DICYCLOMINE [Concomitant]
     Active Substance: DICYCLOMINE HYDROCHLORIDE
     Indication: Abdominal pain
  3. RISPERIDONE [Concomitant]
     Active Substance: RISPERIDONE
     Indication: Aggression

REACTIONS (2)
  - Behaviour disorder [Recovered/Resolved]
  - Dyskinesia [Recovered/Resolved]
